FAERS Safety Report 17051950 (Version 6)
Quarter: 2025Q2

REPORT INFORMATION
  Report Type: Spontaneous
  Country: DE (occurrence: DE)
  Receive Date: 20191120
  Receipt Date: 20250429
  Transmission Date: 20250717
  Serious: Yes (Hospitalization, Other)
  Sender: AUROBINDO
  Company Number: DE-EMA-DD-20191105-AGRAHARI_P-110122

PATIENT
  Age: 32 Year
  Sex: Male
  Weight: 116.5 kg

DRUGS (26)
  1. PREGABALIN [Suspect]
     Active Substance: PREGABALIN
     Indication: Product used for unknown indication
     Dosage: 300 MILLIGRAM, ONCE A DAY
     Route: 065
  2. PREGABALIN [Suspect]
     Active Substance: PREGABALIN
     Dosage: 300 MILLIGRAM, ONCE A DAY
     Route: 065
     Dates: start: 2014, end: 20160829
  3. PREGABALIN [Suspect]
     Active Substance: PREGABALIN
     Dosage: 175 MILLIGRAM, ONCE A DAY
     Route: 048
     Dates: start: 20160731, end: 20160828
  4. PREGABALIN [Suspect]
     Active Substance: PREGABALIN
     Dosage: 300 MILLIGRAM, ONCE A DAY
     Route: 065
     Dates: start: 201706
  5. VENLAFAXINE [Suspect]
     Active Substance: VENLAFAXINE HYDROCHLORIDE
     Indication: Product used for unknown indication
     Route: 050
     Dates: start: 201706
  6. LITHIUM CARBONATE [Suspect]
     Active Substance: LITHIUM CARBONATE
     Indication: Product used for unknown indication
     Dosage: 900 MILLIGRAM, ONCE A DAY
     Route: 065
  7. LITHIUM CARBONATE [Suspect]
     Active Substance: LITHIUM CARBONATE
     Dosage: 1125 MILLIGRAM, ONCE A DAY
     Route: 065
     Dates: start: 201511, end: 20160730
  8. LITHIUM CARBONATE [Suspect]
     Active Substance: LITHIUM CARBONATE
     Dosage: 1125 MILLIGRAM, ONCE A DAY
     Route: 065
     Dates: start: 201601, end: 201608
  9. LITHIUM CARBONATE [Suspect]
     Active Substance: LITHIUM CARBONATE
     Dosage: 900 MILLIGRAM, ONCE A DAY
     Route: 065
     Dates: start: 201706, end: 20171123
  10. LITHIUM CARBONATE [Suspect]
     Active Substance: LITHIUM CARBONATE
     Route: 065
     Dates: start: 201706
  11. LITHIUM CARBONATE [Suspect]
     Active Substance: LITHIUM CARBONATE
     Dosage: 900 MILLIGRAM, ONCE A DAY
     Route: 048
     Dates: start: 20160731, end: 20160828
  12. TIZANIDINE [Suspect]
     Active Substance: TIZANIDINE
     Indication: Muscle relaxant therapy
     Dosage: 12 MILLIGRAM, ONCE A DAY
     Route: 065
     Dates: start: 201605
  13. TIZANIDINE [Suspect]
     Active Substance: TIZANIDINE
     Indication: Muscle relaxant therapy
     Dosage: 12 MILLIGRAM, ONCE A DAY
     Route: 065
  14. TIZANIDINE [Suspect]
     Active Substance: TIZANIDINE
     Dosage: 12 MILLIGRAM, ONCE A DAY
     Route: 048
     Dates: start: 201605
  15. TIZANIDINE [Suspect]
     Active Substance: TIZANIDINE
     Dosage: UNK (DOSE TAPER FROM 12 TO 5 MG)
     Route: 048
     Dates: start: 2016, end: 20160829
  16. TIZANIDINE [Suspect]
     Active Substance: TIZANIDINE
     Dosage: UNK (DOSE TAPER FROM 5 MG TO 0)
     Route: 048
     Dates: start: 20160830, end: 20160906
  17. DOXEPIN [Suspect]
     Active Substance: DOXEPIN
     Indication: Antidepressant therapy
     Dosage: 100 MILLIGRAM, ONCE A DAY
     Route: 065
  18. DOXEPIN [Suspect]
     Active Substance: DOXEPIN
     Route: 048
     Dates: start: 20160725, end: 20160802
  19. DOXEPIN [Suspect]
     Active Substance: DOXEPIN
     Dosage: 100 MILLIGRAM, ONCE A DAY
     Route: 065
     Dates: start: 20160803, end: 20160829
  20. DOXEPIN [Suspect]
     Active Substance: DOXEPIN
     Dosage: 50 MILLIGRAM, ONCE A DAY
     Route: 048
     Dates: start: 20160830, end: 20160831
  21. DOXEPIN [Suspect]
     Active Substance: DOXEPIN
     Dosage: 52.5 MILLIGRAM, ONCE A DAY
     Route: 065
     Dates: start: 2017
  22. BUPROPION [Concomitant]
     Active Substance: BUPROPION
     Indication: Product used for unknown indication
     Dosage: 150 MILLIGRAM, ONCE A DAY
     Route: 065
     Dates: start: 201712
  23. OMEPRAZOLE [Concomitant]
     Active Substance: OMEPRAZOLE
     Indication: Gastrointestinal disorder
     Dosage: 40 MILLIGRAM, ONCE A DAY
     Route: 065
  24. OMEPRAZOLE [Concomitant]
     Active Substance: OMEPRAZOLE
     Dosage: 20 MILLIGRAM, ONCE A DAY
     Route: 065
     Dates: start: 20171110, end: 20171121
  25. VITAMIN D [Concomitant]
     Active Substance: VITAMIN D NOS
     Indication: Vitamin supplementation
     Dosage: 500 INTERNATIONAL UNIT, ONCE A DAY
     Route: 065
  26. VENLAFAXINE [Concomitant]
     Active Substance: VENLAFAXINE HYDROCHLORIDE
     Indication: Product used for unknown indication
     Route: 065
     Dates: start: 201706

REACTIONS (16)
  - Nephrotic syndrome [Recovered/Resolved]
  - Kidney enlargement [Unknown]
  - Oedema [Recovered/Resolved]
  - Pleural effusion [Recovered/Resolved]
  - Dyspnoea [Recovered/Resolved]
  - Weight increased [Unknown]
  - Proteinuria [Recovered/Resolved]
  - Hypoalbuminaemia [Recovered/Resolved]
  - Haematuria [Recovered/Resolved]
  - Protein S decreased [Recovered/Resolved]
  - Disease recurrence [Recovered/Resolved]
  - Psychotic disorder [Unknown]
  - Albuminuria [Recovered/Resolved]
  - Pain [Unknown]
  - Persistent depressive disorder [Unknown]
  - Drug ineffective [Unknown]

NARRATIVE: CASE EVENT DATE: 20160101
